FAERS Safety Report 9337565 (Version 1)
Quarter: 2013Q2

REPORT INFORMATION
  Report Type: Spontaneous
  Country: US (occurrence: US)
  Receive Date: 20130607
  Receipt Date: 20130607
  Transmission Date: 20140414
  Serious: Yes (Death, Other)
  Sender: FDA-Public Use
  Company Number: US-INCYTE CORPORATION-2013IN001123

PATIENT
  Sex: Male

DRUGS (4)
  1. JAKAFI [Suspect]
     Dosage: 5 MG, QD
     Route: 048
     Dates: start: 20130412, end: 20130531
  2. VITAMIN B [Concomitant]
  3. GLIMEPIRIDE [Concomitant]
  4. PERCOCET [Concomitant]

REACTIONS (2)
  - Death [Fatal]
  - Malaise [Unknown]
